FAERS Safety Report 8740879 (Version 2)
Quarter: 2013Q2

REPORT INFORMATION
  Report Type: Spontaneous
  Country: IT (occurrence: IT)
  Receive Date: 20120823
  Receipt Date: 20130607
  Transmission Date: 20140414
  Serious: Yes (Hospitalization)
  Sender: FDA-Public Use
  Company Number: IT-MYLANLABS-2012S1016685

PATIENT
  Age: 50 Year
  Sex: Male

DRUGS (2)
  1. KETOPROFEN [Suspect]
     Indication: NECK PAIN
     Dosage: 200 MG/DAY
     Route: 065
  2. MINIRIN [Interacting]
     Indication: DIABETES INSIPIDUS
     Dosage: 60 MCG 4 TABLETS A DAY
     Route: 060

REACTIONS (5)
  - Hyponatraemia [Recovered/Resolved]
  - Drug interaction [Recovered/Resolved]
  - Grand mal convulsion [Recovered/Resolved]
  - Coma [Recovered/Resolved]
  - Water intoxication [Recovered/Resolved]
